FAERS Safety Report 8129948-1 (Version None)
Quarter: 2012Q1

REPORT INFORMATION
  Report Type: 
  Country: None (occurrence: None)
  Receive Date: 20120210
  Receipt Date: 20120206
  Transmission Date: 20120608
  Serious: Yes (Disabling)
  Sender: FDA-Public Use
  Company Number: US-PFIZER INC-2012033199

PATIENT
  Sex: Female
  Weight: 81.633 kg

DRUGS (5)
  1. EFFEXOR XR [Suspect]
     Dosage: 150 MG, 1X/DAY
     Dates: start: 20120206
  2. EFFEXOR XR [Suspect]
     Dosage: 75 MG, 1X/DAY
     Dates: start: 20110901
  3. METFORMIN [Concomitant]
     Indication: DIABETES MELLITUS
     Dosage: 500 MG, 2X/DAY
  4. EFFEXOR XR [Suspect]
     Indication: DEPRESSION
     Dosage: 150 MG, 1X/DAY
     Dates: start: 20101101
  5. LISINOPRIL [Concomitant]
     Indication: HYPERTENSION
     Dosage: 25 MG, 1X/DAY

REACTIONS (7)
  - DRUG ADMINISTRATION ERROR [None]
  - ENERGY INCREASED [None]
  - ABNORMAL DREAMS [None]
  - GAIT DISTURBANCE [None]
  - DIZZINESS [None]
  - BEDRIDDEN [None]
  - CRYING [None]
